FAERS Safety Report 6652413-5 (Version None)
Quarter: 2010Q1

REPORT INFORMATION
  Report Type: 
  Country: None (occurrence: None)
  Receive Date: 20100323
  Receipt Date: 20100311
  Transmission Date: 20100710
  Serious: Yes (Other)
  Sender: FDA-Public Use
  Company Number: 231892J10USA

PATIENT
  Age: 54 Year
  Sex: Male
  Weight: 100 kg

DRUGS (3)
  1. REBIF [Suspect]
     Indication: MULTIPLE SCLEROSIS
     Dosage: 44 MCG, 3 IN 1 WEEKS, SUBCUTANEOUS
     Route: 058
     Dates: start: 20030301
  2. PROVIGIL [Concomitant]
  3. PREDNISONE TAB [Concomitant]

REACTIONS (2)
  - INJECTION SITE ERYTHEMA [None]
  - RHEUMATOID ARTHRITIS [None]
